FAERS Safety Report 18606949 (Version 1)
Quarter: 2020Q4

REPORT INFORMATION
  Report Type: Spontaneous
  Country: US (occurrence: US)
  Receive Date: 20201211
  Receipt Date: 20201211
  Transmission Date: 20210114
  Serious: No
  Sender: FDA-Public Use
  Company Number: US-BIOMARINAP-US-2020-133063

PATIENT
  Age: 34 Year
  Sex: Female
  Weight: 158.73 kg

DRUGS (1)
  1. ALDURAZYME [Suspect]
     Active Substance: LARONIDASE
     Indication: MUCOPOLYSACCHARIDOSIS I
     Dosage: 81 MILLIGRAM, QOW
     Route: 041

REACTIONS (3)
  - Dermatitis contact [Unknown]
  - Pruritus [Unknown]
  - Weight increased [Unknown]
